FAERS Safety Report 12798936 (Version 4)
Quarter: 2017Q1

REPORT INFORMATION
  Report Type: Spontaneous
  Country: JP (occurrence: JP)
  Receive Date: 20160930
  Receipt Date: 20170313
  Transmission Date: 20170428
  Serious: Yes (Death)
  Sender: FDA-Public Use
  Company Number: JP-JNJFOC-20160928260

PATIENT
  Age: 36 Year
  Sex: Male
  Weight: 63 kg

DRUGS (17)
  1. XEPLION [Suspect]
     Active Substance: PALIPERIDONE PALMITATE
     Indication: SCHIZOPHRENIA
     Route: 030
     Dates: start: 20160817, end: 20160817
  2. ETIZOLAM [Concomitant]
     Active Substance: ETIZOLAM
     Indication: ANXIETY
     Route: 048
     Dates: start: 20160919, end: 20160923
  3. HIBERNA [Concomitant]
     Active Substance: PROMETHAZINE HYDROCHLORIDE
     Indication: PARKINSONISM
     Route: 048
     Dates: start: 20160905, end: 20160923
  4. LOXOPROFEN SODIUM [Concomitant]
     Active Substance: LOXOPROFEN SODIUM
     Indication: PRODUCT USED FOR UNKNOWN INDICATION
     Route: 048
     Dates: start: 20160527, end: 20160923
  5. HIBERNA [Concomitant]
     Active Substance: PROMETHAZINE HYDROCHLORIDE
     Indication: PARKINSONISM
     Route: 048
  6. SODIUM VALPROATE [Concomitant]
     Active Substance: VALPROATE SODIUM
     Indication: BIPOLAR I DISORDER
     Route: 048
     Dates: start: 20160809, end: 20160923
  7. SENNOSIDE [Concomitant]
     Active Substance: SENNOSIDES
     Indication: CONSTIPATION
     Route: 048
     Dates: start: 20160503, end: 20160923
  8. DAIKENCHUTO [Concomitant]
     Active Substance: HERBALS
     Indication: PRODUCT USED FOR UNKNOWN INDICATION
     Route: 048
  9. TEGRETOL [Concomitant]
     Active Substance: CARBAMAZEPINE
     Indication: ANXIETY
     Route: 048
     Dates: start: 20160425, end: 20160923
  10. LOXOPROFEN SODIUM [Concomitant]
     Active Substance: LOXOPROFEN SODIUM
     Indication: PRODUCT USED FOR UNKNOWN INDICATION
     Route: 048
  11. QUAZEPAM. [Concomitant]
     Active Substance: QUAZEPAM
     Indication: ANXIETY
     Route: 048
     Dates: start: 20160425, end: 20160923
  12. FLUNITRAZEPAM [Concomitant]
     Active Substance: FLUNITRAZEPAM
     Indication: INSOMNIA
     Route: 048
     Dates: start: 20160517, end: 20160923
  13. DAIKENCHUTO [Concomitant]
     Active Substance: HERBALS
     Indication: PRODUCT USED FOR UNKNOWN INDICATION
     Route: 048
     Dates: start: 20160510, end: 20160923
  14. XEPLION [Suspect]
     Active Substance: PALIPERIDONE PALMITATE
     Indication: SCHIZOPHRENIA
     Route: 030
     Dates: start: 20160914, end: 20160914
  15. CETILO [Concomitant]
     Active Substance: SENNA LEAF
     Indication: CONSTIPATION
     Route: 048
     Dates: start: 20160514, end: 20160923
  16. XEPLION [Suspect]
     Active Substance: PALIPERIDONE PALMITATE
     Indication: SCHIZOPHRENIA
     Route: 030
     Dates: start: 20160810, end: 20160810
  17. NITROUS OXIDE. [Concomitant]
     Active Substance: NITROUS OXIDE
     Indication: ABDOMINAL DISTENSION
     Route: 048
     Dates: start: 20160704, end: 20160923

REACTIONS (1)
  - Acute myocardial infarction [Fatal]

NARRATIVE: CASE EVENT DATE: 20160923
